FAERS Safety Report 10795496 (Version 1)
Quarter: 2015Q1

REPORT INFORMATION
  Report Type: Spontaneous
  Country: US (occurrence: US)
  Receive Date: 20150215
  Receipt Date: 20150215
  Transmission Date: 20150721
  Serious: Yes (Death, Hospitalization, Other)
  Sender: FDA-Public Use
  Company Number: US-ACTAVIS-2015-01861

PATIENT
  Age: 43 Year
  Sex: Female

DRUGS (3)
  1. DIPHENHYDRAMINE (WATSON LABORATORIES) [Suspect]
     Active Substance: DIPHENHYDRAMINE
     Indication: OVERDOSE
     Dosage: 8125 MG, TOTAL
     Route: 048
  2. ERGOCALCIFEROL. [Concomitant]
     Active Substance: ERGOCALCIFEROL
     Indication: PRODUCT USED FOR UNKNOWN INDICATION
     Dosage: UNK
     Route: 065
  3. LORATADINE. [Concomitant]
     Active Substance: LORATADINE
     Indication: PRODUCT USED FOR UNKNOWN INDICATION
     Dosage: UNK
     Route: 065

REACTIONS (14)
  - Overdose [Fatal]
  - White blood cell count increased [Unknown]
  - Disseminated intravascular coagulation [Fatal]
  - Electrocardiogram QRS complex prolonged [Unknown]
  - Completed suicide [Fatal]
  - Blood lactic acid increased [Unknown]
  - PCO2 decreased [Unknown]
  - Electrocardiogram QT prolonged [Unknown]
  - PCO2 increased [Unknown]
  - Troponin increased [Unknown]
  - Bradycardia [Unknown]
  - Alanine aminotransferase increased [Unknown]
  - Blood creatinine increased [Unknown]
  - International normalised ratio increased [Unknown]
